FAERS Safety Report 8056810-5 (Version None)
Quarter: 2012Q1

REPORT INFORMATION
  Report Type: 
  Country: None (occurrence: None)
  Receive Date: 20120119
  Receipt Date: 20120111
  Transmission Date: 20120608
  Serious: Yes (Disabling)
  Sender: FDA-Public Use
  Company Number: JP-GLAXOSMITHKLINE-B0770237A

PATIENT
  Sex: Male

DRUGS (6)
  1. BUPVERINE [Concomitant]
     Indication: POLLAKIURIA
     Dosage: 40MG PER DAY
     Route: 048
     Dates: start: 20110319
  2. ZOPICOOL [Concomitant]
     Indication: INSOMNIA
     Dosage: 7.5MG PER DAY
     Route: 048
     Dates: start: 20081222
  3. LAMICTAL [Suspect]
     Indication: BIPOLAR DISORDER
     Route: 048
     Dates: start: 20110810, end: 20111018
  4. VALERIN (JAPAN) [Concomitant]
     Indication: BIPOLAR I DISORDER
     Route: 048
     Dates: start: 20110311
  5. ROHYPNOL [Concomitant]
     Indication: INSOMNIA
     Dosage: 2MG PER DAY
     Route: 048
     Dates: start: 20101116
  6. TASMOLIN [Concomitant]
     Indication: PARKINSONISM
     Dosage: 4MG PER DAY
     Route: 048
     Dates: start: 20101116

REACTIONS (5)
  - BLISTER [None]
  - SCAB [None]
  - OEDEMA [None]
  - ERYTHEMA [None]
  - DRUG ERUPTION [None]
